FAERS Safety Report 7396179-2 (Version None)
Quarter: 2011Q2

REPORT INFORMATION
  Report Type: 
  Country: None (occurrence: None)
  Receive Date: 20110406
  Receipt Date: 20110324
  Transmission Date: 20111010
  Serious: Yes (Hospitalization)
  Sender: FDA-Public Use
  Company Number: US-ELI_LILLY_AND_COMPANY-US201007004806

PATIENT
  Sex: Female

DRUGS (4)
  1. PREDNISONE [Concomitant]
     Dosage: 5 MG, QD
  2. FORTEO [Suspect]
     Indication: OSTEOPOROSIS
     Dosage: 20 UG, QD
     Dates: start: 20100701
  3. SIMVASTATIN [Concomitant]
  4. ADVAIR DISKUS 100/50 [Concomitant]
     Dosage: 50050 DF, BID
     Route: 055

REACTIONS (4)
  - BACK DISORDER [None]
  - PAIN IN EXTREMITY [None]
  - ARTHRALGIA [None]
  - INJECTION SITE HAEMATOMA [None]
